FAERS Safety Report 9699907 (Version 4)
Quarter: 2014Q1

REPORT INFORMATION
  Report Type: Report from Study
  Country: BR (occurrence: BR)
  Receive Date: 20131121
  Receipt Date: 20140210
  Transmission Date: 20141002
  Serious: Yes (Hospitalization)
  Sender: FDA-Public Use
  Company Number: BR-ROCHE-1307260

PATIENT
  Sex: Female
  Weight: 64 kg

DRUGS (4)
  1. MABTHERA [Suspect]
     Indication: RHEUMATOID ARTHRITIS
     Route: 042
  2. ACTEMRA [Suspect]
     Indication: RHEUMATOID ARTHRITIS
     Route: 042
     Dates: start: 201312
  3. MIDAZOLAM HYDROCHLORIDE [Concomitant]
     Indication: RHEUMATOID ARTHRITIS
  4. DEFLAZACORT [Concomitant]
     Indication: RHEUMATOID ARTHRITIS

REACTIONS (4)
  - Diverticular perforation [Unknown]
  - Diverticulitis [Recovered/Resolved]
  - Sepsis [Recovered/Resolved]
  - Diverticulum [Not Recovered/Not Resolved]
